FAERS Safety Report 25368387 (Version 1)
Quarter: 2025Q2

REPORT INFORMATION
  Report Type: Spontaneous
  Country: US (occurrence: US)
  Receive Date: 20250528
  Receipt Date: 20250528
  Transmission Date: 20250717
  Serious: No
  Sender: MYLAN
  Company Number: US-MYLANLABS-2025M1043400

PATIENT
  Sex: Female
  Weight: 54.4 kg

DRUGS (52)
  1. REVATIO [Suspect]
     Active Substance: SILDENAFIL CITRATE
     Indication: Product used for unknown indication
  2. REVATIO [Suspect]
     Active Substance: SILDENAFIL CITRATE
     Route: 065
  3. REVATIO [Suspect]
     Active Substance: SILDENAFIL CITRATE
     Route: 065
  4. REVATIO [Suspect]
     Active Substance: SILDENAFIL CITRATE
  5. TYVASO DPI [Suspect]
     Active Substance: TREPROSTINIL
     Indication: Pulmonary arterial hypertension
     Dosage: 16 MICROGRAM, QID (4 TIMES A DAY)
     Dates: start: 20250121
  6. TYVASO DPI [Suspect]
     Active Substance: TREPROSTINIL
     Dosage: 16 MICROGRAM, QID (4 TIMES A DAY)
     Dates: start: 20250121
  7. TYVASO DPI [Suspect]
     Active Substance: TREPROSTINIL
     Dosage: 16 MICROGRAM, QID (4 TIMES A DAY)
     Route: 055
     Dates: start: 20250121
  8. TYVASO DPI [Suspect]
     Active Substance: TREPROSTINIL
     Dosage: 16 MICROGRAM, QID (4 TIMES A DAY)
     Route: 055
     Dates: start: 20250121
  9. TYVASO DPI [Suspect]
     Active Substance: TREPROSTINIL
  10. TYVASO DPI [Suspect]
     Active Substance: TREPROSTINIL
  11. TYVASO DPI [Suspect]
     Active Substance: TREPROSTINIL
     Route: 055
  12. TYVASO DPI [Suspect]
     Active Substance: TREPROSTINIL
     Route: 055
  13. ATORVASTATIN CALCIUM [Concomitant]
     Active Substance: ATORVASTATIN CALCIUM
  14. ATORVASTATIN CALCIUM [Concomitant]
     Active Substance: ATORVASTATIN CALCIUM
     Route: 065
  15. ATORVASTATIN CALCIUM [Concomitant]
     Active Substance: ATORVASTATIN CALCIUM
     Route: 065
  16. ATORVASTATIN CALCIUM [Concomitant]
     Active Substance: ATORVASTATIN CALCIUM
  17. WARFARIN SODIUM [Concomitant]
     Active Substance: WARFARIN SODIUM
  18. WARFARIN SODIUM [Concomitant]
     Active Substance: WARFARIN SODIUM
     Route: 065
  19. WARFARIN SODIUM [Concomitant]
     Active Substance: WARFARIN SODIUM
     Route: 065
  20. WARFARIN SODIUM [Concomitant]
     Active Substance: WARFARIN SODIUM
  21. AMOXICILLIN [Concomitant]
     Active Substance: AMOXICILLIN
  22. AMOXICILLIN [Concomitant]
     Active Substance: AMOXICILLIN
     Route: 065
  23. AMOXICILLIN [Concomitant]
     Active Substance: AMOXICILLIN
     Route: 065
  24. AMOXICILLIN [Concomitant]
     Active Substance: AMOXICILLIN
  25. LISINOPRIL [Concomitant]
     Active Substance: LISINOPRIL
  26. LISINOPRIL [Concomitant]
     Active Substance: LISINOPRIL
     Route: 065
  27. LISINOPRIL [Concomitant]
     Active Substance: LISINOPRIL
     Route: 065
  28. LISINOPRIL [Concomitant]
     Active Substance: LISINOPRIL
  29. BUMETANIDE [Concomitant]
     Active Substance: BUMETANIDE
  30. BUMETANIDE [Concomitant]
     Active Substance: BUMETANIDE
     Route: 065
  31. BUMETANIDE [Concomitant]
     Active Substance: BUMETANIDE
     Route: 065
  32. BUMETANIDE [Concomitant]
     Active Substance: BUMETANIDE
  33. METOPROLOL SUCCINATE [Concomitant]
     Active Substance: METOPROLOL SUCCINATE
  34. METOPROLOL SUCCINATE [Concomitant]
     Active Substance: METOPROLOL SUCCINATE
     Route: 065
  35. METOPROLOL SUCCINATE [Concomitant]
     Active Substance: METOPROLOL SUCCINATE
     Route: 065
  36. METOPROLOL SUCCINATE [Concomitant]
     Active Substance: METOPROLOL SUCCINATE
  37. LEVOTHYROXINE SODIUM [Concomitant]
     Active Substance: LEVOTHYROXINE SODIUM
  38. LEVOTHYROXINE SODIUM [Concomitant]
     Active Substance: LEVOTHYROXINE SODIUM
     Route: 065
  39. LEVOTHYROXINE SODIUM [Concomitant]
     Active Substance: LEVOTHYROXINE SODIUM
     Route: 065
  40. LEVOTHYROXINE SODIUM [Concomitant]
     Active Substance: LEVOTHYROXINE SODIUM
  41. OXYGEN [Concomitant]
     Active Substance: OXYGEN
  42. OXYGEN [Concomitant]
     Active Substance: OXYGEN
     Route: 065
  43. OXYGEN [Concomitant]
     Active Substance: OXYGEN
     Route: 065
  44. OXYGEN [Concomitant]
     Active Substance: OXYGEN
  45. STIOLTO RESPIMAT [Concomitant]
     Active Substance: OLODATEROL HYDROCHLORIDE\TIOTROPIUM BROMIDE MONOHYDRATE
  46. STIOLTO RESPIMAT [Concomitant]
     Active Substance: OLODATEROL HYDROCHLORIDE\TIOTROPIUM BROMIDE MONOHYDRATE
     Route: 065
  47. STIOLTO RESPIMAT [Concomitant]
     Active Substance: OLODATEROL HYDROCHLORIDE\TIOTROPIUM BROMIDE MONOHYDRATE
     Route: 065
  48. STIOLTO RESPIMAT [Concomitant]
     Active Substance: OLODATEROL HYDROCHLORIDE\TIOTROPIUM BROMIDE MONOHYDRATE
  49. TRIAMCINOLONE ACETONIDE [Concomitant]
     Active Substance: TRIAMCINOLONE ACETONIDE
  50. TRIAMCINOLONE ACETONIDE [Concomitant]
     Active Substance: TRIAMCINOLONE ACETONIDE
     Route: 065
  51. TRIAMCINOLONE ACETONIDE [Concomitant]
     Active Substance: TRIAMCINOLONE ACETONIDE
     Route: 065
  52. TRIAMCINOLONE ACETONIDE [Concomitant]
     Active Substance: TRIAMCINOLONE ACETONIDE

REACTIONS (1)
  - Diarrhoea [Unknown]

NARRATIVE: CASE EVENT DATE: 20250101
